FAERS Safety Report 25597281 (Version 1)
Quarter: 2025Q3

REPORT INFORMATION
  Report Type: Spontaneous
  Country: US (occurrence: US)
  Receive Date: 20250723
  Receipt Date: 20250723
  Transmission Date: 20251021
  Serious: No
  Sender: VERTEX
  Company Number: US-VERTEX PHARMACEUTICALS-2025-011714

PATIENT
  Sex: Male

DRUGS (2)
  1. SUZETRIGINE [Suspect]
     Active Substance: SUZETRIGINE
     Indication: Pain
     Route: 048
     Dates: start: 20250619
  2. SUZETRIGINE [Suspect]
     Active Substance: SUZETRIGINE
     Indication: Neuropathy peripheral

REACTIONS (2)
  - Somnolence [Unknown]
  - Off label use [Unknown]

NARRATIVE: CASE EVENT DATE: 20250101
